FAERS Safety Report 20677394 (Version 1)
Quarter: 2022Q2

REPORT INFORMATION
  Report Type: Spontaneous
  Country: US (occurrence: US)
  Receive Date: 20220406
  Receipt Date: 20220406
  Transmission Date: 20220721
  Serious: No
  Sender: FDA-Public Use
  Company Number: US-UNITED THERAPEUTICS-UNT-2022-006250

PATIENT
  Age: 21 Year
  Sex: Male
  Weight: 94.331 kg

DRUGS (9)
  1. REMODULIN [Suspect]
     Active Substance: TREPROSTINIL
     Indication: Pulmonary arterial hypertension
     Dosage: UNK, CONTINUING
     Route: 041
     Dates: start: 20220318
  2. REMODULIN [Suspect]
     Active Substance: TREPROSTINIL
     Dosage: 0.120 ?G/KG, CONTINUING
     Route: 041
     Dates: start: 202203
  3. VELETRI [Suspect]
     Active Substance: EPOPROSTENOL
     Indication: Pulmonary arterial hypertension
     Dosage: 0.07 ?G/KG, CONTINUING,  1 IN EVERY 1 MIN
     Route: 041
  4. VELETRI [Suspect]
     Active Substance: EPOPROSTENOL
     Dosage: 0.073 ?G/KG, CONTINUING  1 IN EVERY 1 MIN
     Route: 041
  5. VELETRI [Suspect]
     Active Substance: EPOPROSTENOL
     Dosage: UNK, 1 IN EVERY 1 MIN
     Route: 041
  6. VELETRI [Suspect]
     Active Substance: EPOPROSTENOL
     Dosage: UNK, 1 IN EVERY 1 MIN
     Route: 041
     Dates: end: 202203
  7. OPSUMIT [Concomitant]
     Active Substance: MACITENTAN
     Indication: Pulmonary arterial hypertension
     Dosage: 10 MG, QD
     Route: 048
     Dates: end: 202203
  8. TADALAFIL [Concomitant]
     Active Substance: TADALAFIL
     Indication: Product used for unknown indication
     Route: 065
  9. ELIQUIS [Concomitant]
     Active Substance: APIXABAN
     Indication: Product used for unknown indication
     Dosage: UNK
     Route: 065

REACTIONS (2)
  - Pain in extremity [Unknown]
  - Dyspnoea exertional [Unknown]

NARRATIVE: CASE EVENT DATE: 20220301
